FAERS Safety Report 6998921-9 (Version None)
Quarter: 2010Q3

REPORT INFORMATION
  Report Type: 
  Country: None (occurrence: None)
  Receive Date: 20100920
  Receipt Date: 20100309
  Transmission Date: 20110219
  Serious: No
  Sender: FDA-Public Use
  Company Number: US-ASTRAZENECA-2009SE19756

PATIENT
  Age: 401 Month
  Weight: 81.6 kg

DRUGS (5)
  1. SEROQUEL [Suspect]
     Indication: BIPOLAR DISORDER
     Route: 048
     Dates: start: 20010101, end: 20081201
  2. ABILIFY [Concomitant]
     Dates: start: 20060101
  3. GEODON [Concomitant]
  4. HALDOL [Concomitant]
  5. RISPERDAL [Concomitant]

REACTIONS (2)
  - OBESITY [None]
  - TYPE 2 DIABETES MELLITUS [None]
